FAERS Safety Report 24932729 (Version 1)
Quarter: 2025Q1

REPORT INFORMATION
  Report Type: Report from Study
  Country: US (occurrence: US)
  Receive Date: 20250205
  Receipt Date: 20250205
  Transmission Date: 20250409
  Serious: No
  Sender: EXELIXIS
  Company Number: US-EXELIXIS-EXL-2024-000620

PATIENT
  Sex: Female

DRUGS (2)
  1. CABOMETYX [Suspect]
     Active Substance: CABOZANTINIB S-MALATE
     Indication: Renal cancer
     Dosage: 40 MG, QD
     Route: 048
     Dates: start: 202404
  2. LENVIMA [Concomitant]
     Active Substance: LENVATINIB

REACTIONS (6)
  - Pallor [Unknown]
  - Dry mouth [Unknown]
  - Dry skin [Unknown]
  - Constipation [Unknown]
  - Reflux laryngitis [Unknown]
  - Skin discolouration [Unknown]
